FAERS Safety Report 5618659-X (Version None)
Quarter: 2008Q1

REPORT INFORMATION
  Report Type: 
  Country: None (occurrence: None)
  Receive Date: 20080205
  Receipt Date: 20080205
  Transmission Date: 20080703
  Serious: Yes (Death)
  Sender: FDA-Public Use
  Company Number: None

PATIENT
  Age: 76 Year
  Sex: Male
  Weight: 79.3795 kg

DRUGS (1)
  1. HEPARIN [Suspect]
     Dates: start: 20080117, end: 20080121

REACTIONS (2)
  - CARDIAC PROCEDURE COMPLICATION [None]
  - DRUG HYPERSENSITIVITY [None]
